FAERS Safety Report 15467262 (Version 4)
Quarter: 2018Q4

REPORT INFORMATION
  Report Type: Report from Study
  Country: US (occurrence: US)
  Receive Date: 20181005
  Receipt Date: 20181213
  Transmission Date: 20190204
  Serious: Yes (Hospitalization, Other)
  Sender: FDA-Public Use
  Company Number: US-TESAROUBC-2018-TSO0819-US

PATIENT
  Age: 52 Year
  Sex: Female

DRUGS (1)
  1. ZEJULA [Suspect]
     Active Substance: NIRAPARIB
     Indication: OVARIAN CANCER
     Dosage: 100 MG, QD IN THE EVENING (AROUND 11 PM) WITHOUT FOOD, BEFORE BEDTIME
     Route: 048
     Dates: start: 20180718

REACTIONS (11)
  - Pain in extremity [Unknown]
  - Paraesthesia [Unknown]
  - Vitamin D decreased [Not Recovered/Not Resolved]
  - Product dose omission [Unknown]
  - Arthralgia [Unknown]
  - Snoring [Unknown]
  - Fatigue [Not Recovered/Not Resolved]
  - Blood potassium decreased [Unknown]
  - Intervertebral disc operation [Unknown]
  - Musculoskeletal pain [Unknown]
  - Underdose [Unknown]

NARRATIVE: CASE EVENT DATE: 2018
